FAERS Safety Report 7506009-3 (Version None)
Quarter: 2011Q2

REPORT INFORMATION
  Report Type: 
  Country: None (occurrence: None)
  Receive Date: 20110526
  Receipt Date: 20110521
  Transmission Date: 20111010
  Serious: Yes (Death, Hospitalization, Other)
  Sender: FDA-Public Use
  Company Number: PHHY2011US44322

PATIENT
  Age: 79 Year

DRUGS (2)
  1. EXELON [Suspect]
     Indication: DEMENTIA
     Dosage: UNK
     Dates: start: 20010101
  2. BAPINEUZUMAB [Concomitant]
     Dosage: 0.5 MG/KG, UNK
     Dates: start: 20070201, end: 20071101

REACTIONS (15)
  - CEREBROVASCULAR ACCIDENT [None]
  - VASOGENIC CEREBRAL OEDEMA [None]
  - CARDIAC FAILURE CONGESTIVE [None]
  - GAIT DISTURBANCE [None]
  - ACTIVITIES OF DAILY LIVING IMPAIRED [None]
  - MENTAL STATUS CHANGES [None]
  - CEREBRAL SMALL VESSEL ISCHAEMIC DISEASE [None]
  - ATAXIA [None]
  - HYPERSOMNIA [None]
  - MEMORY IMPAIRMENT [None]
  - LACUNAR INFARCTION [None]
  - DEMENTIA ALZHEIMER'S TYPE [None]
  - COGNITIVE DISORDER [None]
  - DEPRESSED LEVEL OF CONSCIOUSNESS [None]
  - ACUTE MYOCARDIAL INFARCTION [None]
